FAERS Safety Report 9285831 (Version 1)
Quarter: 2013Q2

REPORT INFORMATION
  Report Type: Spontaneous
  Country: US (occurrence: US)
  Receive Date: 20130513
  Receipt Date: 20130513
  Transmission Date: 20140414
  Serious: Yes (Hospitalization, Other)
  Sender: FDA-Public Use
  Company Number: US-PFIZER INC-2013145669

PATIENT
  Age: 60 Year
  Sex: Female
  Weight: 52.15 kg

DRUGS (6)
  1. NEURONTIN [Suspect]
     Indication: NEURALGIA
     Dosage: 300 MG, 2X/DAY
     Route: 048
     Dates: start: 2012, end: 201305
  2. IMITREX [Concomitant]
     Dosage: UNK
  3. VICODIN [Concomitant]
     Dosage: UNK
  4. KADIAN [Concomitant]
     Dosage: UNK
  5. VISTARIL [Concomitant]
     Dosage: UNK
  6. XANAX [Concomitant]
     Dosage: UNK

REACTIONS (11)
  - Hand deformity [Unknown]
  - Foot deformity [Unknown]
  - Activities of daily living impaired [Recovered/Resolved]
  - Dyskinesia [Recovered/Resolved]
  - Anaemia [Unknown]
  - Blood potassium decreased [Unknown]
  - Migraine [Unknown]
  - Fall [Recovered/Resolved]
  - Gait disturbance [Recovered/Resolved]
  - Tremor [Recovered/Resolved]
  - Dysphemia [Recovered/Resolved]
